FAERS Safety Report 6337797-X (Version None)
Quarter: 2009Q3

REPORT INFORMATION
  Report Type: 
  Country: None (occurrence: None)
  Receive Date: 20090902
  Receipt Date: 20090828
  Transmission Date: 20100115
  Serious: Yes (Life-Threatening, Hospitalization, Other)
  Sender: FDA-Public Use
  Company Number: A0787116A

PATIENT
  Age: 41 Year
  Weight: 103.6 kg

DRUGS (7)
  1. PROMACTA [Suspect]
     Indication: IDIOPATHIC THROMBOCYTOPENIC PURPURA
     Dosage: 75MG PER DAY
     Route: 048
     Dates: start: 20090326, end: 20090520
  2. COUMADIN [Concomitant]
     Route: 048
  3. SYNTHROID [Concomitant]
     Route: 048
  4. CALCIUM [Concomitant]
     Route: 048
  5. MAGNESIUM [Concomitant]
     Route: 048
  6. GLUCOSAMINE [Concomitant]
     Route: 048
  7. PREDNISONE [Concomitant]
     Indication: IDIOPATHIC THROMBOCYTOPENIC PURPURA
     Dates: start: 20060901

REACTIONS (1)
  - PULMONARY EMBOLISM [None]
